FAERS Safety Report 6097600-2 (Version None)
Quarter: 2009Q1

REPORT INFORMATION
  Report Type: 
  Country: None (occurrence: None)
  Receive Date: 20090227
  Receipt Date: 20081216
  Transmission Date: 20090719
  Serious: No
  Sender: FDA-Public Use
  Company Number: A0761367A

PATIENT

DRUGS (2)
  1. SUMATRIPTAN SUCCINATE [Suspect]
     Dosage: 6MG AS REQUIRED
     Route: 058
     Dates: start: 20081203
  2. GSK AUTOINJECTOR [Suspect]
     Dates: start: 20081203

REACTIONS (1)
  - DEVICE MALFUNCTION [None]
